FAERS Safety Report 7249397-8 (Version None)
Quarter: 2011Q1

REPORT INFORMATION
  Report Type: 
  Country: None (occurrence: None)
  Receive Date: 20110110
  Receipt Date: 20110110
  Transmission Date: 20110831
  Serious: Yes (Other)
  Sender: FDA-Public Use
  Company Number: None

PATIENT
  Age: 58 Year
  Sex: Male
  Weight: 106.5953 kg

DRUGS (1)
  1. BOCA/UTILET ALCOHOL SWAPB S BOCA/UTILET [Suspect]
     Indication: THERAPEUTIC SKIN CARE TOPICAL
     Dosage: SWAB
     Dates: start: 20101031, end: 20101231

REACTIONS (3)
  - DIARRHOEA [None]
  - INFLUENZA LIKE ILLNESS [None]
  - PAIN [None]
